FAERS Safety Report 26111061 (Version 1)
Quarter: 2025Q4

REPORT INFORMATION
  Report Type: Spontaneous
  Country: US (occurrence: US)
  Receive Date: 20251202
  Receipt Date: 20251202
  Transmission Date: 20260118
  Serious: Yes (Hospitalization, Other)
  Sender: LUPIN
  Company Number: US-LUPIN PHARMACEUTICALS INC.-2025-10764

PATIENT
  Age: 17 Year
  Sex: Female

DRUGS (5)
  1. MORPHINE SULFATE [Suspect]
     Active Substance: MORPHINE SULFATE
     Indication: Product used for unknown indication
     Dosage: 30 MILLIGRAM (INGESTED EIGHT TABLETS OF CONTROLLED-RELEASE)
     Route: 065
  2. FLUOXETINE [Suspect]
     Active Substance: FLUOXETINE HYDROCHLORIDE
     Indication: Product used for unknown indication
     Dosage: 20 MILLIGRAM (INGESTED 20 TABLETS)
     Route: 065
  3. OLANZAPINE [Suspect]
     Active Substance: OLANZAPINE
     Indication: Product used for unknown indication
     Dosage: 15 MILLIGRAM (INGESTED 8 TABLETS)
     Route: 065
  4. HYDROCODONE [Suspect]
     Active Substance: HYDROCODONE
     Indication: Product used for unknown indication
     Dosage: 10 MILLIGRAM (INGESTED 20 TABLETS)
     Route: 065
  5. ACETAMINOPHEN [Suspect]
     Active Substance: ACETAMINOPHEN
     Indication: Product used for unknown indication
     Dosage: 325 MILLIGRAM
     Route: 065

REACTIONS (8)
  - Toxicity to various agents [Recovered/Resolved]
  - Tachycardia [Recovered/Resolved]
  - Depressed level of consciousness [Recovered/Resolved]
  - Depression [Recovered/Resolved]
  - Hypopnoea [Recovered/Resolved]
  - Bradypnoea [Recovered/Resolved]
  - Respiratory depression [Recovered/Resolved]
  - Intentional overdose [Unknown]
